FAERS Safety Report 18387497 (Version 14)
Quarter: 2021Q3

REPORT INFORMATION
  Report Type: Report from Study
  Country: BE (occurrence: BE)
  Receive Date: 20201015
  Receipt Date: 20210707
  Transmission Date: 20211014
  Serious: Yes (Hospitalization, Other)
  Sender: FDA-Public Use
  Company Number: BE-BAYER-2020-138397

PATIENT
  Age: 76 Year
  Sex: Male

DRUGS (20)
  1. STIVARGA [Suspect]
     Active Substance: REGORAFENIB
     Indication: COLORECTAL CANCER
     Dosage: 120 MG, UNK
     Dates: start: 20200826
  2. COLITOFALK [Concomitant]
     Active Substance: MESALAMINE
     Dosage: 500 MG, UNK
     Dates: start: 202007, end: 202007
  3. PANTOPRAZOLE [Concomitant]
     Active Substance: PANTOPRAZOLE
     Dosage: UNK
  4. TAMSULOSIN [Concomitant]
     Active Substance: TAMSULOSIN
     Indication: PROSTATIC DISORDER
     Dosage: UNK
     Dates: start: 20200915
  5. CLEXANE [Concomitant]
     Active Substance: ENOXAPARIN SODIUM
     Dosage: UNK
     Dates: start: 20210201
  6. DALIBOUR [Concomitant]
     Indication: PENILE DISCOMFORT
     Dosage: UNK
     Dates: start: 20200921
  7. STIVARGA [Suspect]
     Active Substance: REGORAFENIB
     Indication: COLORECTAL CANCER
     Dosage: DAILY DOSE 120 MG
     Dates: start: 20200523, end: 20200529
  8. LORMETAZEPAM [Concomitant]
     Active Substance: LORMETAZEPAM
     Dosage: UNK
  9. FINASTERIDE. [Concomitant]
     Active Substance: FINASTERIDE
     Dosage: UNK
  10. SIMVASTATIN. [Concomitant]
     Active Substance: SIMVASTATIN
     Dosage: UNK
  11. DAFALGAN [Concomitant]
     Active Substance: ACETAMINOPHEN
     Indication: PAIN
     Dosage: UNK
     Dates: start: 20210201
  12. STIVARGA [Suspect]
     Active Substance: REGORAFENIB
     Indication: COLORECTAL CANCER
     Dosage: DAILY DOSE 80 MG
     Dates: start: 20200516, end: 20200522
  13. UNI DIAMICRON [Concomitant]
     Active Substance: GLICLAZIDE
     Dosage: UNK
  14. STIVARGA [Suspect]
     Active Substance: REGORAFENIB
     Indication: COLORECTAL CANCER
     Dosage: DAILY DOSE 120 MG
     Route: 048
     Dates: start: 20200718, end: 20200817
  15. OLMETEC [Concomitant]
     Active Substance: OLMESARTAN MEDOXOMIL
     Dosage: UNK
  16. ELIQUIS [Concomitant]
     Active Substance: APIXABAN
     Dosage: UNK
  17. GYNO?DAKTARIN [Concomitant]
     Active Substance: MICONAZOLE
     Indication: PENILE DISCOMFORT
     Dosage: UNK
     Dates: start: 20200921
  18. STIVARGA [Suspect]
     Active Substance: REGORAFENIB
     Indication: COLORECTAL CANCER
     Dosage: DAILY DOSE 160 MG
     Dates: start: 20200530
  19. PROGOR [Concomitant]
     Active Substance: DILTIAZEM HYDROCHLORIDE
     Dosage: UNK
  20. AFFUSINE [Concomitant]
     Dosage: UNK
     Dates: start: 20210210

REACTIONS (61)
  - Medical device site infection [Recovered/Resolved]
  - Blood urine present [Recovering/Resolving]
  - Pruritus [Recovered/Resolved]
  - Penile infection [Recovered/Resolved]
  - Palmar-plantar erythrodysaesthesia syndrome [Recovered/Resolved]
  - Hypotonic urinary bladder [Not Recovered/Not Resolved]
  - Fatigue [Not Recovered/Not Resolved]
  - Abnormal faeces [Recovered/Resolved]
  - Dysphonia [Not Recovered/Not Resolved]
  - Blood urine present [Recovered/Resolved]
  - Coccydynia [Not Recovered/Not Resolved]
  - Anal haemorrhage [Recovering/Resolving]
  - Decreased appetite [Not Recovered/Not Resolved]
  - Urethral stent insertion [Recovered/Resolved]
  - Decreased appetite [Recovering/Resolving]
  - Muscle spasms [Recovered/Resolved]
  - Urine odour abnormal [Recovered/Resolved]
  - Weight decreased [Recovered/Resolved]
  - Intestinal obstruction [Recovered/Resolved]
  - Bladder disorder [Recovered/Resolved]
  - Colorectal cancer [Not Recovered/Not Resolved]
  - Urinary retention [None]
  - Bacterial infection [Not Recovered/Not Resolved]
  - Myalgia [Recovered/Resolved]
  - Off label use [None]
  - Depressed mood [Not Recovered/Not Resolved]
  - Malaise [Recovering/Resolving]
  - Intestinal obstruction [Recovered/Resolved]
  - Sepsis [Recovered/Resolved]
  - Anorectal discomfort [Recovered/Resolved]
  - Malaise [Recovered/Resolved]
  - Visual impairment [Not Recovered/Not Resolved]
  - Depressed mood [Recovering/Resolving]
  - Decreased appetite [Recovering/Resolving]
  - Pain [Not Recovered/Not Resolved]
  - Memory impairment [Not Recovered/Not Resolved]
  - Bladder pain [Recovering/Resolving]
  - Change of bowel habit [Not Recovered/Not Resolved]
  - Diarrhoea [Not Recovered/Not Resolved]
  - Cystitis bacterial [Recovered/Resolved]
  - Tachycardia [Recovering/Resolving]
  - Vomiting [Recovered/Resolved]
  - Palmar-plantar erythrodysaesthesia syndrome [Recovered/Resolved]
  - Muscle spasms [Not Recovered/Not Resolved]
  - Penile pain [Recovered/Resolved]
  - Back pain [Recovered/Resolved]
  - Hypoacusis [Not Recovered/Not Resolved]
  - Herpes zoster [Recovered/Resolved]
  - Hypertension [Not Recovered/Not Resolved]
  - Change of bowel habit [Not Recovered/Not Resolved]
  - Weight decreased [Not Recovered/Not Resolved]
  - Malaise [Not Recovered/Not Resolved]
  - Cystostomy [Not Recovered/Not Resolved]
  - Bladder obstruction [None]
  - Post procedural haemorrhage [Recovered/Resolved]
  - Confusional state [Recovering/Resolving]
  - Weight decreased [Recovered/Resolved]
  - Headache [Recovered/Resolved]
  - Skin discolouration [Not Recovered/Not Resolved]
  - Confusional state [Not Recovered/Not Resolved]
  - Palmar-plantar erythrodysaesthesia syndrome [Recovered/Resolved]

NARRATIVE: CASE EVENT DATE: 20200516
